FAERS Safety Report 20715494 (Version 2)
Quarter: 2022Q2

REPORT INFORMATION
  Report Type: Report from Study
  Country: DE (occurrence: DE)
  Receive Date: 20220415
  Receipt Date: 20220426
  Transmission Date: 20220720
  Serious: Yes (Hospitalization, Other)
  Sender: FDA-Public Use
  Company Number: DE-002147023-PHHY2018DE018854

PATIENT
  Sex: Female
  Weight: 56 kg

DRUGS (3)
  1. AZACITIDINE [Suspect]
     Active Substance: AZACITIDINE
     Indication: Ovarian granulosa cell tumour
     Dosage: 126 IU, 9 DAYS (3 CYCLES, REPEAT FROM DAY 29)
     Route: 065
     Dates: start: 20170731
  2. DEFERASIROX [Suspect]
     Active Substance: DEFERASIROX
     Indication: Iron overload
     Dosage: (12.85MG/KG BODYWEIGHT/DAY=2TABLETS A 360MG)
     Route: 048
     Dates: start: 20171005, end: 20180417
  3. FULVESTRANT [Concomitant]
     Active Substance: FULVESTRANT
     Indication: Ovarian granulosa cell tumour
     Dosage: 250 IU
     Route: 065
     Dates: start: 20170911

REACTIONS (5)
  - Pneumonia [Recovered/Resolved]
  - Leukopenia [Recovered/Resolved]
  - Neutropenia [Recovering/Resolving]
  - Thrombocytopenia [Not Recovered/Not Resolved]
  - Intentional product use issue [Unknown]

NARRATIVE: CASE EVENT DATE: 20180129
